FAERS Safety Report 24689876 (Version 3)
Quarter: 2025Q1

REPORT INFORMATION
  Report Type: Spontaneous
  Country: PL (occurrence: PL)
  Receive Date: 20241203
  Receipt Date: 20250102
  Transmission Date: 20250409
  Serious: Yes (Death, Life-Threatening, Hospitalization, Other)
  Sender: MYLAN
  Company Number: PL-SUN PHARMACEUTICAL INDUSTRIES LTD-2024R1-479756

PATIENT
  Age: 70 Year
  Sex: Male

DRUGS (5)
  1. METFORMIN [Suspect]
     Active Substance: METFORMIN HYDROCHLORIDE
     Indication: Type 2 diabetes mellitus
     Route: 065
  2. IRINOTECAN [Suspect]
     Active Substance: IRINOTECAN
     Indication: Product used for unknown indication
     Route: 065
  3. FLUOROURACIL [Suspect]
     Active Substance: FLUOROURACIL
     Indication: Product used for unknown indication
     Route: 065
  4. ACETAMINOPHEN [Suspect]
     Active Substance: ACETAMINOPHEN
     Indication: Product used for unknown indication
     Route: 065
  5. OXYCODONE HYDROCHLORIDE [Suspect]
     Active Substance: OXYCODONE HYDROCHLORIDE
     Indication: Abdominal pain
     Route: 065

REACTIONS (11)
  - Colorectal cancer [Fatal]
  - Metastases to peritoneum [Fatal]
  - Gastrointestinal obstruction [Fatal]
  - Condition aggravated [Fatal]
  - Death [Fatal]
  - Electrolyte imbalance [Unknown]
  - General physical health deterioration [Unknown]
  - Small intestinal obstruction [Unknown]
  - Sepsis [Unknown]
  - Nausea [Unknown]
  - Vomiting [Unknown]
